FAERS Safety Report 6455255-9 (Version None)
Quarter: 2009Q4

REPORT INFORMATION
  Report Type: 
  Country: None (occurrence: None)
  Receive Date: 20091119
  Receipt Date: 20091109
  Transmission Date: 20100525
  Serious: Yes (Other)
  Sender: FDA-Public Use
  Company Number: 2009-04684

PATIENT
  Sex: Male

DRUGS (2)
  1. VELCADE [Suspect]
     Indication: DRUG USE FOR UNKNOWN INDICATION
  2. DOXIL (DOXORUBUCIN HYDROCHLORIDE) [Concomitant]

REACTIONS (2)
  - NEUROPATHY PERIPHERAL [None]
  - OSTEONECROSIS [None]
